FAERS Safety Report 13414702 (Version 2)
Quarter: 2017Q2

REPORT INFORMATION
  Report Type: Report from Study
  Country: DE (occurrence: DE)
  Receive Date: 20170407
  Receipt Date: 20170519
  Transmission Date: 20170830
  Serious: Yes (Hospitalization, Other)
  Sender: FDA-Public Use
  Company Number: DE-INCYTE CORPORATION-2017IN002567

PATIENT

DRUGS (2)
  1. JAKAVI [Suspect]
     Active Substance: RUXOLITINIB
     Indication: MYELOPROLIFERATIVE NEOPLASM
  2. JAKAVI [Suspect]
     Active Substance: RUXOLITINIB
     Indication: MYELOFIBROSIS
     Dosage: 35 MG, QD
     Route: 048
     Dates: start: 20141017

REACTIONS (8)
  - Epilepsy [Recovered/Resolved]
  - Haemoglobin decreased [Unknown]
  - Product use in unapproved indication [Unknown]
  - Upper gastrointestinal haemorrhage [Recovered/Resolved]
  - Dehydration [Recovered/Resolved]
  - Gastric ulcer [Recovered/Resolved]
  - Electrolyte imbalance [Recovered/Resolved]
  - Osmotic demyelination syndrome [Unknown]

NARRATIVE: CASE EVENT DATE: 20160923
